FAERS Safety Report 12334441 (Version 1)
Quarter: 2016Q2

REPORT INFORMATION
  Report Type: Spontaneous
  Country: GB (occurrence: GB)
  Receive Date: 20160504
  Receipt Date: 20160504
  Transmission Date: 20160815
  Serious: Yes (Hospitalization)
  Sender: FDA-Public Use
  Company Number: GB-ELI_LILLY_AND_COMPANY-GB201604009421

PATIENT
  Age: 89 Year

DRUGS (10)
  1. FLUOXETINE [Suspect]
     Active Substance: FLUOXETINE HYDROCHLORIDE
     Indication: PRODUCT USED FOR UNKNOWN INDICATION
     Dosage: 20 MG, QD
     Route: 048
  2. APO-FOLIC ACID [Concomitant]
     Active Substance: FOLIC ACID
     Dosage: 5 MG, QD
  3. VITAMIN B [Concomitant]
     Active Substance: VITAMIN B
     Dosage: 1 DF, QD
  4. BISOPROLOL [Concomitant]
     Active Substance: BISOPROLOL
     Dosage: 3.75 MG, QD
  5. A.P. CODEINE [Concomitant]
     Dosage: UNK
  6. LANSOPRAZOLE. [Suspect]
     Active Substance: LANSOPRAZOLE
     Indication: PRODUCT USED FOR UNKNOWN INDICATION
     Dosage: 15 MG, QD
     Route: 048
  7. APO PARACETAMOL [Concomitant]
     Dosage: UNK
  8. THIAMINE. [Concomitant]
     Active Substance: THIAMINE
     Dosage: 100 MG, TID
  9. ASPIRIN                            /00002701/ [Concomitant]
     Active Substance: ASPIRIN
     Dosage: 75 MG, QD
  10. ATORVASTATIN [Concomitant]
     Active Substance: ATORVASTATIN
     Dosage: 20 MG, QD

REACTIONS (6)
  - Blood magnesium decreased [Unknown]
  - Blood potassium decreased [Unknown]
  - Electrocardiogram QT prolonged [Unknown]
  - Blood calcium decreased [Unknown]
  - Urosepsis [Unknown]
  - Pulmonary sepsis [Unknown]
